FAERS Safety Report 13008286 (Version 2)
Quarter: 2017Q1

REPORT INFORMATION
  Report Type: Spontaneous
  Country: US (occurrence: US)
  Receive Date: 20161208
  Receipt Date: 20170228
  Transmission Date: 20170428
  Serious: No
  Sender: FDA-Public Use
  Company Number: US-ASTRAZENECA-2016SF27023

PATIENT
  Sex: Female
  Weight: 97.5 kg

DRUGS (1)
  1. SYMBICORT [Suspect]
     Active Substance: BUDESONIDE\FORMOTEROL FUMARATE DIHYDRATE
     Indication: CHRONIC OBSTRUCTIVE PULMONARY DISEASE
     Dosage: 160 4.5, 2 PUFFS TWICE A DAY
     Route: 055
     Dates: start: 201411

REACTIONS (3)
  - Device malfunction [Unknown]
  - Intentional product misuse [Unknown]
  - Dyspnoea [Unknown]
